FAERS Safety Report 18790825 (Version 4)
Quarter: 2025Q1

REPORT INFORMATION
  Report Type: Spontaneous
  Country: US (occurrence: US)
  Receive Date: 20210126
  Receipt Date: 20250131
  Transmission Date: 20250408
  Serious: No
  Sender: PFIZER
  Company Number: US-PFIZER INC-2021070181

PATIENT
  Age: 71 Year
  Sex: Male
  Weight: 102.04 kg

DRUGS (1)
  1. VYNDAMAX [Suspect]
     Active Substance: TAFAMIDIS
     Indication: Acquired ATTR amyloidosis
     Dosage: 61 MG, DAILY
     Route: 048

REACTIONS (2)
  - Abdominal pain upper [Recovered/Resolved]
  - Influenza [Unknown]
